FAERS Safety Report 7014515-3 (Version None)
Quarter: 2010Q3

REPORT INFORMATION
  Report Type: 
  Country: None (occurrence: None)
  Receive Date: 20100927
  Receipt Date: 20100504
  Transmission Date: 20110219
  Serious: Yes (Death, Other)
  Sender: FDA-Public Use
  Company Number: US-WYE-H17666810

PATIENT
  Age: 76 Year
  Sex: Female

DRUGS (2)
  1. AMIODARONE HCL [Suspect]
     Dosage: DOSE AND FREQUENCY NOT SPECIFIED
     Route: 065
  2. COUMADIN [Suspect]
     Dosage: DOSE AND FREQUENCY NOT SPECIFIED
     Route: 065

REACTIONS (2)
  - CARDIAC FAILURE CONGESTIVE [None]
  - DEATH [None]
